FAERS Safety Report 6468612-1 (Version None)
Quarter: 2009Q4

REPORT INFORMATION
  Report Type: 
  Country: None (occurrence: None)
  Receive Date: 20091203
  Receipt Date: 20091124
  Transmission Date: 20100525
  Serious: Yes (Hospitalization, Other)
  Sender: FDA-Public Use
  Company Number: US-ROCHE-661202

PATIENT
  Sex: Female
  Weight: 83.5 kg

DRUGS (14)
  1. CAPECITABINE [Suspect]
     Indication: BREAST CANCER
     Dosage: LAST GIVEN: 06 AUGUST 2009
     Route: 048
     Dates: start: 20081217
  2. ZOMETA [Concomitant]
     Dosage: CONCENTRATE (OF 4MG/5 ML) DAILY SHORT OVER; 30 MINUTES FOR 1 DAY IN NS 100 ML; LAST GIVEN: 06 AUG 09
     Route: 042
     Dates: start: 20080707
  3. FASLODEX [Concomitant]
     Dosage: EVERY FOUR WEEKS FOR THREE DOSES; LAST GIVEN: 23 MAY 2008
     Route: 030
     Dates: start: 20070806, end: 20080701
  4. HYDROXYZINE HCL [Concomitant]
     Dosage: PRN
     Route: 048
     Dates: start: 20071004
  5. ACETAMINOPHEN W/ CODEINE [Concomitant]
     Dosage: DOSE: 300-30 MG Q 4 HOURS PRN
     Route: 048
     Dates: start: 20090507
  6. ALBUTEROL SULFATE AUTOHALER [Concomitant]
     Dosage: NEBULIZATION SOLUTION INHALATION
     Route: 055
  7. CALTRATE 600 + D [Concomitant]
     Dosage: DRUG: CALTRATE 600 PLUS-VIT D
     Route: 048
  8. CELEBREX [Concomitant]
     Dosage: DAILY PRN
     Route: 048
  9. NEXIUM [Concomitant]
     Dosage: CAPSULE DELAYED RELEASE
     Route: 048
  10. DARBEPOETIN ALFA [Concomitant]
     Dosage: DRUG: DARBEPOETIN ALFA-ALBUMIN; DAILY FOR ONE DAY; LAST GIVEN: 12 FEB 2009
     Route: 058
     Dates: start: 20090212
  11. HYDROCHLOROTHIAZIDE [Concomitant]
     Dosage: DAILY
     Route: 048
     Dates: end: 20091021
  12. INFLUENZA VIRUS VACCINE [Concomitant]
     Dosage: LAST GIVEN: 4 OCT 2007; DRUG: INFLUENZA VIRUS VACCINE SPLIT
     Dates: start: 20071004
  13. LOTREL [Concomitant]
     Dosage: DAILY
     Route: 048
     Dates: end: 20091021
  14. SULAR [Concomitant]
     Dosage: TABLET SR 24 HR DAILY
     Route: 048
     Dates: end: 20091021

REACTIONS (7)
  - ANAEMIA [None]
  - DUODENITIS [None]
  - DYSPNOEA [None]
  - GASTROINTESTINAL HAEMORRHAGE [None]
  - HIATUS HERNIA [None]
  - HYPOKALAEMIA [None]
  - INTESTINAL MASS [None]
